FAERS Safety Report 11647891 (Version 1)
Quarter: 2015Q4

REPORT INFORMATION
  Report Type: Spontaneous
  Country: US (occurrence: None)
  Receive Date: 20151020
  Receipt Date: 20151020
  Transmission Date: 20160304
  Serious: No
  Sender: FDA-Public Use
  Company Number: None

PATIENT
  Age: 42 Year
  Sex: Female
  Weight: 81.19 kg

DRUGS (7)
  1. HYDROCODONE/ACETAMINOPEN 20/325 WATSON/ACTIVIS [Suspect]
     Active Substance: ACETAMINOPHEN\HYDROCODONE BITARTRATE
     Indication: BACK PAIN
     Dosage: 1 PILL
     Route: 048
     Dates: start: 20150722, end: 20151019
  2. PAXIL [Concomitant]
     Active Substance: PAROXETINE HYDROCHLORIDE
  3. IBUPROFEN. [Concomitant]
     Active Substance: IBUPROFEN
  4. HYDROCODONE/ACETAMINOPEN 20/325 WATSON/ACTIVIS [Suspect]
     Active Substance: ACETAMINOPHEN\HYDROCODONE BITARTRATE
     Indication: LUNG OPERATION
     Dosage: 1 PILL
     Route: 048
     Dates: start: 20150722, end: 20151019
  5. HYDROCODONE/ACETAMINOPEN 20/325 WATSON/ACTIVIS [Suspect]
     Active Substance: ACETAMINOPHEN\HYDROCODONE BITARTRATE
     Indication: TEMPOROMANDIBULAR JOINT SYNDROME
     Dosage: 1 PILL
     Route: 048
     Dates: start: 20150722, end: 20151019
  6. XANAX [Concomitant]
     Active Substance: ALPRAZOLAM
  7. NEUROTIN [Concomitant]
     Active Substance: GABAPENTIN

REACTIONS (3)
  - Drug ineffective [None]
  - Product substitution issue [None]
  - Product quality issue [None]

NARRATIVE: CASE EVENT DATE: 20151019
